FAERS Safety Report 8360489-2 (Version None)
Quarter: 2012Q1

REPORT INFORMATION
  Report Type: 
  Country: None (occurrence: None)
  Receive Date: 20120315
  Receipt Date: 20110511
  Transmission Date: 20120608
  Serious: Yes (Other)
  Sender: FDA-Public Use
  Company Number: PHHY2010US89778

PATIENT
  Age: 59 Year
  Sex: Female

DRUGS (1)
  1. GILENYA [Suspect]
     Indication: MULTIPLE SCLEROSIS
     Dosage: 0.5 MG, QD, ORAL
     Route: 048
     Dates: start: 20101203

REACTIONS (6)
  - DYSPNOEA [None]
  - MULTIPLE SCLEROSIS RELAPSE [None]
  - YELLOW SKIN [None]
  - ABASIA [None]
  - BACK PAIN [None]
  - ARTHRALGIA [None]
